FAERS Safety Report 7256121-1 (Version None)
Quarter: 2011Q1

REPORT INFORMATION
  Report Type: 
  Country: None (occurrence: None)
  Receive Date: 20110129
  Receipt Date: 20100507
  Transmission Date: 20110831
  Serious: No
  Sender: FDA-Public Use
  Company Number: US-ABBOTT-10P-163-0643320-00

PATIENT
  Age: 59 Year
  Sex: Female

DRUGS (9)
  1. FLUOXETINE [Concomitant]
     Indication: ANXIETY
  2. HUMIRA [Suspect]
     Indication: PSORIASIS
     Dates: start: 20100301
  3. PSEUDOEPHEDRINE HCL [Concomitant]
     Indication: HYPERSENSITIVITY
  4. ATENOLOL [Concomitant]
     Indication: HYPERTENSION
  5. GLIPIZIDE [Concomitant]
     Indication: TYPE 2 DIABETES MELLITUS
     Dates: start: 20080901
  6. SINGULAIR [Concomitant]
     Indication: HYPERSENSITIVITY
  7. TYLENOL-500 [Concomitant]
     Indication: PAIN
  8. TYLENOL-500 [Concomitant]
     Indication: HEADACHE
  9. TYLENOL-500 [Concomitant]

REACTIONS (1)
  - PRURITUS [None]
